FAERS Safety Report 7283190-5 (Version None)
Quarter: 2011Q1

REPORT INFORMATION
  Report Type: 
  Country: None (occurrence: None)
  Receive Date: 20110209
  Receipt Date: 20110126
  Transmission Date: 20110831
  Serious: Yes (Hospitalization, Other)
  Sender: FDA-Public Use
  Company Number: PHHY2011FR00990

PATIENT
  Age: 16 Year
  Sex: Female

DRUGS (2)
  1. LAMISIL [Suspect]
     Indication: ONYCHOMYCOSIS
  2. LAMICTAL [Suspect]
     Dosage: 100 MG DAILY
     Route: 048

REACTIONS (15)
  - INFLAMMATION [None]
  - PNEUMONIA [None]
  - DYSPHAGIA [None]
  - PYREXIA [None]
  - DRUG DISPENSING ERROR [None]
  - RASH [None]
  - FACE OEDEMA [None]
  - SKIN DISORDER [None]
  - CYTOLYTIC HEPATITIS [None]
  - LYMPHADENOPATHY [None]
  - RASH MACULAR [None]
  - ORAL MUCOSA EROSION [None]
  - TOXIC EPIDERMAL NECROLYSIS [None]
  - URINARY TRACT INFECTION [None]
  - BLISTER [None]
